FAERS Safety Report 5009264-7 (Version None)
Quarter: 2006Q2

REPORT INFORMATION
  Report Type: 
  Country: None (occurrence: None)
  Receive Date: 20060522
  Receipt Date: 20060508
  Transmission Date: 20061013
  Serious: Yes (Death, Hospitalization)
  Sender: FDA-Public Use
  Company Number: 2006BI002582

PATIENT
  Age: 78 Year
  Sex: Female

DRUGS (32)
  1. AVONEX [Suspect]
     Indication: MULTIPLE SCLEROSIS
     Dosage: 30 UG;QW;IM
     Route: 030
     Dates: start: 20010811
  2. CARBIDOPA [Concomitant]
  3. CLONAZEPAM [Concomitant]
  4. ELAVIL [Concomitant]
  5. PERSANTINE [Concomitant]
  6. ASPIRIN [Concomitant]
  7. DILANTIN [Concomitant]
  8. BACLOFEN [Concomitant]
  9. DETROL [Concomitant]
  10. LEXAPRO [Concomitant]
  11. MIRALEX [Concomitant]
  12. AMBIEN [Concomitant]
  13. LASIX [Concomitant]
  14. HYDROXYZINE [Concomitant]
  15. SEROQUEL [Concomitant]
  16. PROTONIX [Concomitant]
  17. TRILEPTAL [Concomitant]
  18. PREVACID [Concomitant]
  19. NITROGLYCERIN [Concomitant]
  20. LORTAB [Concomitant]
  21. PHENERGAN HCL [Concomitant]
  22. PAXIL [Concomitant]
  23. DOCUSATE [Concomitant]
  24. CARAFATE [Concomitant]
  25. ALTACE [Concomitant]
  26. METOPROLOL [Concomitant]
  27. INDERAL [Concomitant]
  28. VENTOLIN [Concomitant]
  29. ATROVENT [Concomitant]
  30. SENOKOT [Concomitant]
  31. CEFTIN [Concomitant]
  32. LIDEX [Concomitant]

REACTIONS (10)
  - CARDIAC FAILURE CONGESTIVE [None]
  - CHRONIC OBSTRUCTIVE PULMONARY DISEASE [None]
  - COMA [None]
  - DEPRESSION [None]
  - MULTIPLE SCLEROSIS [None]
  - PARKINSON'S DISEASE [None]
  - PNEUMONIA BACTERIAL [None]
  - RESPIRATORY DISTRESS [None]
  - STRIDOR [None]
  - URINARY TRACT INFECTION [None]
